FAERS Safety Report 14152799 (Version 2)
Quarter: 2018Q1

REPORT INFORMATION
  Report Type: Report from Study
  Country: None (occurrence: US)
  Receive Date: 20171102
  Receipt Date: 20180207
  Transmission Date: 20180508
  Serious: Yes (Hospitalization, Other)
  Sender: FDA-Public Use
  Company Number: US-ABBVIE-17K-163-2146217-00

PATIENT
  Sex: Female

DRUGS (1)
  1. HUMIRA [Suspect]
     Active Substance: ADALIMUMAB
     Indication: PSORIASIS
     Route: 058

REACTIONS (15)
  - Haemorrhagic anaemia [Unknown]
  - Influenza [Unknown]
  - Injection site haemorrhage [Unknown]
  - Fluid retention [Unknown]
  - Injection site pain [Unknown]
  - Nausea [Unknown]
  - Blood iron decreased [Unknown]
  - Blood insulin abnormal [Unknown]
  - Cellulitis [Unknown]
  - Vomiting [Unknown]
  - Injection site swelling [Unknown]
  - Gastrointestinal haemorrhage [Unknown]
  - Blood magnesium decreased [Unknown]
  - Blood potassium decreased [Unknown]
  - Diarrhoea [Unknown]

NARRATIVE: CASE EVENT DATE: 2017
